FAERS Safety Report 4276021-9 (Version None)
Quarter: 2004Q1

REPORT INFORMATION
  Report Type: 
  Country: None (occurrence: None)
  Receive Date: 20040121
  Receipt Date: 20030604
  Transmission Date: 20041129
  Serious: No
  Sender: FDA-Public Use
  Company Number: US-GLAXOSMITHKLINE-A0413085A

PATIENT
  Age: 19 Year
  Sex: Male
  Weight: 63 kg

DRUGS (3)
  1. VALTREX [Suspect]
     Dosage: 500MG PER DAY
     Route: 048
     Dates: start: 20030101
  2. CENTRUM VITAMINS [Concomitant]
     Indication: NUTRITIONAL SUPPORT
     Dosage: 1TAB PER DAY
     Route: 048
  3. TYLENOL [Concomitant]
     Indication: HEADACHE
     Dosage: 500MG AS REQUIRED
     Route: 048

REACTIONS (1)
  - ALOPECIA [None]
